FAERS Safety Report 5916822-1 (Version None)
Quarter: 2008Q3

REPORT INFORMATION
  Report Type: 
  Country: None (occurrence: None)
  Receive Date: 20080909
  Receipt Date: 20070824
  Transmission Date: 20090109
  Serious: Yes (Death, Other)
  Sender: FDA-Public Use
  Company Number: 163-20785-07051448

PATIENT
  Age: 64 Year
  Sex: Female

DRUGS (1)
  1. THALOMID [Suspect]
     Indication: MULTIPLE MYELOMA
     Dosage: 100MG - 200MG, HS, ORAL
     Route: 048
     Dates: start: 20050531, end: 20070406

REACTIONS (3)
  - MULTIPLE MYELOMA [None]
  - PLASMACYTOMA [None]
  - RENAL FAILURE [None]
